FAERS Safety Report 17252606 (Version 2)
Quarter: 2020Q3

REPORT INFORMATION
  Report Type: Other
  Country: CA (occurrence: CA)
  Receive Date: 20200109
  Receipt Date: 20200921
  Transmission Date: 20201102
  Serious: Yes (Hospitalization, Other)
  Sender: FDA-Public Use
  Company Number: CA-COVIS PHARMA B.V.-2020COV00001

PATIENT
  Age: 74 Year
  Sex: Male

DRUGS (10)
  1. OMNARIS [Suspect]
     Active Substance: CICLESONIDE
     Dosage: UNK
     Route: 055
  2. SALBUTAMOL [Suspect]
     Active Substance: ALBUTEROL
     Dosage: UNK
  3. ADVAIR HFA [Suspect]
     Active Substance: FLUTICASONE PROPIONATE\SALMETEROL XINAFOATE
     Dosage: UNK
  4. FORMOTEROL FUMARATE + BUDESONIDE [Suspect]
     Active Substance: BUDESONIDE\FORMOTEROL FUMARATE
     Dosage: 2.0 DOSAGE FORM 2 EVERY DAY
     Route: 055
  5. PREDNISONE. [Suspect]
     Active Substance: PREDNISONE
     Dosage: UNK
  6. OLODATEROL HYDROCHL+TIOTROPIUM BROMIDE MONOHY [Suspect]
     Active Substance: OLODATEROL HYDROCHLORIDE\TIOTROPIUM BROMIDE MONOHYDRATE
     Dosage: UNK
  7. ATROVENT [Suspect]
     Active Substance: IPRATROPIUM BROMIDE
     Dosage: UNK
  8. FORMOTEROL FUMERATE [Suspect]
     Active Substance: FORMOTEROL FUMARATE
     Dosage: UNK
     Route: 055
  9. FLUTICASONE. [Suspect]
     Active Substance: FLUTICASONE
     Dosage: UNK
  10. SPIRIVA [Suspect]
     Active Substance: TIOTROPIUM BROMIDE MONOHYDRATE
     Dosage: 1 DF, 1X/DAY

REACTIONS (25)
  - Mycobacterium avium complex infection [Recovered/Resolved]
  - Respiratory disorder [Recovered/Resolved]
  - Therapeutic product effect incomplete [Recovered/Resolved]
  - Blood count abnormal [Unknown]
  - Dyspnoea [Recovered/Resolved]
  - Nasal obstruction [Recovered/Resolved]
  - Throat irritation [Recovered/Resolved]
  - Nasal congestion [Recovered/Resolved]
  - Asthma [Recovered/Resolved]
  - Bronchiectasis [Recovered/Resolved]
  - Emphysema [Recovered/Resolved]
  - Obstructive airways disorder [Recovered/Resolved]
  - Osteopenia [Recovered/Resolved]
  - Pneumonia [Recovered/Resolved]
  - Oedema [Recovered/Resolved]
  - Pulmonary function test decreased [Recovered/Resolved]
  - Chest discomfort [Recovered/Resolved]
  - Sputum discoloured [Recovered/Resolved]
  - Wheezing [Recovered/Resolved]
  - Cough [Recovered/Resolved]
  - Drug ineffective [Recovered/Resolved]
  - Lung consolidation [Recovered/Resolved]
  - Pulmonary mass [Recovered/Resolved]
  - Sinus pain [Recovered/Resolved]
  - Asthma-chronic obstructive pulmonary disease overlap syndrome [Recovered/Resolved]
